FAERS Safety Report 13246230 (Version 4)
Quarter: 2020Q4

REPORT INFORMATION
  Report Type: Spontaneous
  Country: US (occurrence: US)
  Receive Date: 20170217
  Receipt Date: 20201109
  Transmission Date: 20210113
  Serious: Yes (Other)
  Sender: FDA-Public Use
  Company Number: US-PFIZER INC-2017066354

PATIENT
  Age: 75 Year
  Sex: Female
  Weight: 63.49 kg

DRUGS (2)
  1. METOPROLOL. [Concomitant]
     Active Substance: METOPROLOL
     Dosage: UNK
  2. XELJANZ XR [Suspect]
     Active Substance: TOFACITINIB CITRATE
     Indication: RHEUMATOID ARTHRITIS
     Dosage: 11 MG, DAILY
     Route: 048
     Dates: start: 201611

REACTIONS (10)
  - Tibia fracture [Not Recovered/Not Resolved]
  - Ligament rupture [Unknown]
  - Arthritis [Not Recovered/Not Resolved]
  - Drug effect less than expected [Unknown]
  - Sensitivity to weather change [Unknown]
  - Bursitis [Not Recovered/Not Resolved]
  - Fibula fracture [Not Recovered/Not Resolved]
  - Nerve compression [Unknown]
  - Infection [Unknown]
  - Pain [Unknown]

NARRATIVE: CASE EVENT DATE: 20161206
